FAERS Safety Report 11797770 (Version 1)
Quarter: 2015Q4

REPORT INFORMATION
  Report Type: Spontaneous
  Country: US (occurrence: US)
  Receive Date: 20151203
  Receipt Date: 20151203
  Transmission Date: 20160305
  Serious: Yes (Other)
  Sender: FDA-Public Use
  Company Number: US-ASTELLAS-2015US038432

PATIENT
  Age: 81 Year
  Sex: Male

DRUGS (1)
  1. XTANDI [Suspect]
     Active Substance: ENZALUTAMIDE
     Indication: PROSTATE CANCER
     Route: 048
     Dates: start: 20150925, end: 20151015

REACTIONS (5)
  - Pneumonia [Unknown]
  - Asthenia [Unknown]
  - Cardiac failure congestive [Unknown]
  - Adverse event [Unknown]
  - Haemorrhage [Unknown]

NARRATIVE: CASE EVENT DATE: 20151015
